FAERS Safety Report 10687452 (Version 3)
Quarter: 2015Q2

REPORT INFORMATION
  Report Type: Spontaneous
  Country: US (occurrence: US)
  Receive Date: 20150102
  Receipt Date: 20150507
  Transmission Date: 20150821
  Serious: Yes (Hospitalization, Other)
  Sender: FDA-Public Use
  Company Number: US-BAYER-2014-191273

PATIENT
  Age: 18 Year
  Sex: Female
  Weight: 61.22 kg

DRUGS (1)
  1. MIRENA [Suspect]
     Active Substance: LEVONORGESTREL
     Indication: CONTRACEPTION
     Dosage: 20 MCG/24HR, CONT
     Route: 015
     Dates: start: 20060101, end: 20081212

REACTIONS (8)
  - Anxiety [None]
  - Injury [None]
  - Infertility female [None]
  - Uterine perforation [None]
  - Depression [None]
  - Emotional distress [None]
  - Pain [None]
  - Pain [None]

NARRATIVE: CASE EVENT DATE: 2006
